FAERS Safety Report 16717546 (Version 5)
Quarter: 2020Q1

REPORT INFORMATION
  Report Type: Other
  Country: CA (occurrence: CA)
  Receive Date: 20190819
  Receipt Date: 20200319
  Transmission Date: 20200409
  Serious: Yes (Other)
  Sender: FDA-Public Use
  Company Number: CA-BECTON DICKINSON-2019BDN00304

PATIENT
  Age: 42 Year
  Sex: Female
  Weight: 81 kg

DRUGS (66)
  1. OXYCODONE [Suspect]
     Active Substance: OXYCODONE
  2. CETIRIZINE HYDROCHLORIDE. [Concomitant]
     Active Substance: CETIRIZINE HYDROCHLORIDE
     Dosage: 10 MG, 2X/DAY
  3. PANTOPRAZOLE [Concomitant]
     Active Substance: PANTOPRAZOLE
  4. PLAQUENIL [Concomitant]
     Active Substance: HYDROXYCHLOROQUINE SULFATE
  5. SULFAMETHOXAZOLE; TRIMETHOPRIM [Concomitant]
     Active Substance: SULFAMETHOXAZOLE\TRIMETHOPRIM
  6. VENTOLIN [Concomitant]
     Active Substance: ALBUTEROL SULFATE
  7. VITAMIN D3 [Concomitant]
     Active Substance: CHOLECALCIFEROL
  8. CHLORAPREP [Suspect]
     Active Substance: CHLORHEXIDINE GLUCONATE\ISOPROPYL ALCOHOL
  9. ACTEMRA [Suspect]
     Active Substance: TOCILIZUMAB
  10. ARAVA [Suspect]
     Active Substance: LEFLUNOMIDE
  11. CERTOLIZUMAB PEGOL [Suspect]
     Active Substance: CERTOLIZUMAB PEGOL
     Indication: RHEUMATOID ARTHRITIS
     Dosage: 200 MG, 2X/MONTH
     Route: 058
  12. ALPHA D [Concomitant]
  13. CETIRIZINE [Concomitant]
     Active Substance: CETIRIZINE HYDROCHLORIDE
  14. CHLOLECALCIFEROL [Concomitant]
  15. NUTRASEA+D [Concomitant]
  16. VITAMIN C [Concomitant]
     Active Substance: ASCORBIC ACID
  17. ACETAMINOPHEN. [Suspect]
     Active Substance: ACETAMINOPHEN
  18. ACETAMINOPHEN W/OXYCODONE [Suspect]
     Active Substance: ACETAMINOPHEN\OXYCODONE HYDROCHLORIDE
     Dosage: 325 MG
  19. CERTOLIZUMAB PEGOL [Suspect]
     Active Substance: CERTOLIZUMAB PEGOL
     Dosage: 400 MG, 2X/MONTH
     Route: 058
  20. CHOLECALCIFEROL [Suspect]
     Active Substance: CHOLECALCIFEROL
  21. REACTINE [Concomitant]
     Dosage: 10 MG, ^2 EVERY 1 DAYS^
  22. CIMZIA [Suspect]
     Active Substance: CERTOLIZUMAB PEGOL
     Dosage: 200 MG, ^2 EVERY 1 MONTHS^
     Route: 058
  23. ENBREL [Suspect]
     Active Substance: ETANERCEPT
     Indication: RHEUMATOID ARTHRITIS
     Route: 058
  24. SULFAMETHOXAZOLE AND TRIMETHOPRIM [Suspect]
     Active Substance: SULFAMETHOXAZOLE\TRIMETHOPRIM
  25. ERGOCALCIFEROL. [Concomitant]
     Active Substance: ERGOCALCIFEROL
  26. HYDROXYCHLOROQUINE [Concomitant]
     Active Substance: HYDROXYCHLOROQUINE
  27. HYDROXYCHLOROQUINE SULFATE. [Concomitant]
     Active Substance: HYDROXYCHLOROQUINE SULFATE
  28. METHOTREXATE. [Suspect]
     Active Substance: METHOTREXATE
  29. OXYCODONE HYDROCHLORIDE. [Suspect]
     Active Substance: OXYCODONE HYDROCHLORIDE
  30. OXYCODONE HYDROCHLORIDE. [Suspect]
     Active Substance: OXYCODONE HYDROCHLORIDE
  31. D-ALPHA TOCOPHEROL [Concomitant]
     Active Substance: .ALPHA.-TOCOPHEROL, D-
  32. FISH OIL [Concomitant]
     Active Substance: FISH OIL
  33. ONE ALPHA [Concomitant]
     Active Substance: ALFACALCIDOL
  34. VENTOLIN [Concomitant]
     Active Substance: ALBUTEROL SULFATE
  35. CHLORHEXIDINE [Suspect]
     Active Substance: CHLORHEXIDINE
  36. CAMELLIA SINENSIS [Concomitant]
     Active Substance: TEA LEAF
  37. MARVELON [Concomitant]
     Active Substance: DESOGESTREL\ETHINYL ESTRADIOL
  38. VITAMIN D [ERGOCALCIFEROL] [Concomitant]
     Active Substance: ERGOCALCIFEROL
  39. ZOPICLONE [Concomitant]
     Active Substance: ZOPICLONE
  40. CIMZIA [Suspect]
     Active Substance: CERTOLIZUMAB PEGOL
     Indication: RHEUMATOID ARTHRITIS
     Dosage: 400 MG
     Route: 058
  41. CIMZIA [Suspect]
     Active Substance: CERTOLIZUMAB PEGOL
     Dosage: 400 MG, ^2 EVERY 1 MONTHS^
     Route: 058
  42. LEFLUNOMIDE. [Suspect]
     Active Substance: LEFLUNOMIDE
     Dosage: UNK
  43. METHOTREXATE. [Suspect]
     Active Substance: METHOTREXATE
  44. OXYCODONE TEREPHTHALATE [Suspect]
     Active Substance: OXYCODONE TEREPHTHALATE
  45. PERIOGARD [Suspect]
     Active Substance: CHLORHEXIDINE GLUCONATE
  46. SIMPONI [Suspect]
     Active Substance: GOLIMUMAB
     Route: 058
  47. ALFACALCIDOL [Concomitant]
     Active Substance: ALFACALCIDOL
  48. DESOGESTREL; ETHINYL ESTRADIOL [Concomitant]
  49. GREEN TEA TINCTURE [Concomitant]
  50. IBUPROFEN. [Concomitant]
     Active Substance: IBUPROFEN
  51. PLAQUENIL [HYDROXYCHLOROQUINE PHOSPHATE] [Concomitant]
     Active Substance: HYDROXYCHLOROQUINE DIPHOSPHATE
  52. PREDNISONE. [Concomitant]
     Active Substance: PREDNISONE
  53. TOCOPHEROL [Concomitant]
     Active Substance: TOCOPHEROL
  54. TRIMETHOPRIM SULFAMETHOXAZOLE [Concomitant]
     Active Substance: SULFAMETHOXAZOLE\TRIMETHOPRIM
  55. TYLENOL [Concomitant]
     Active Substance: ACETAMINOPHEN
  56. TYLENOL [Concomitant]
     Active Substance: ACETAMINOPHEN
  57. VITAMIN C [Concomitant]
     Active Substance: ASCORBIC ACID
  58. VITAMIN D [Concomitant]
     Active Substance: VITAMIN D NOS
  59. LEFLUNOMIDE. [Suspect]
     Active Substance: LEFLUNOMIDE
     Route: 048
  60. ORENCIA [Suspect]
     Active Substance: ABATACEPT
  61. ARAVA [Concomitant]
     Active Substance: LEFLUNOMIDE
  62. CAMELLIA SINENSIS; DALPHATOCOPHEROL; FISH OIL; VITAMIN D3 [Concomitant]
  63. COENZYME Q10 [Concomitant]
     Active Substance: UBIDECARENONE
  64. GREEN TEA EXTRACT [CAMELLIA SINENSIS LEAF] [Concomitant]
  65. PANTOLOC [Concomitant]
     Active Substance: PANTOPRAZOLE SODIUM
     Dosage: 40 MG, 2X/DAY
  66. PANTOPRAZOLE SODIUM ANHYDROUS [Concomitant]
     Active Substance: PANTOPRAZOLE SODIUM ANHYDROUS

REACTIONS (23)
  - Joint swelling [Unknown]
  - Muscle spasticity [Unknown]
  - Abdominal pain upper [Unknown]
  - Body temperature increased [Unknown]
  - Lower respiratory tract infection [Unknown]
  - Rash [Unknown]
  - Respiratory disorder [Unknown]
  - Vomiting [Unknown]
  - Back pain [Unknown]
  - Insomnia [Unknown]
  - Night sweats [Unknown]
  - Urticaria [Unknown]
  - Off label use [Unknown]
  - Pain [Unknown]
  - Asthenia [Unknown]
  - Contraindicated product administered [Unknown]
  - Headache [Unknown]
  - Ear pain [Unknown]
  - Peripheral swelling [Unknown]
  - Pruritus [Unknown]
  - Diarrhoea [Unknown]
  - Incorrect route of product administration [Unknown]
  - Sinusitis [Unknown]
